FAERS Safety Report 22050038 (Version 2)
Quarter: 2025Q1

REPORT INFORMATION
  Report Type: Spontaneous
  Country: US (occurrence: US)
  Receive Date: 20230301
  Receipt Date: 20250317
  Transmission Date: 20250408
  Serious: No
  Sender: SANOFI AVENTIS
  Company Number: US-SA-SAC20230227000245

PATIENT
  Age: 61 Year
  Sex: Female

DRUGS (11)
  1. DUPIXENT [Suspect]
     Active Substance: DUPILUMAB
     Indication: Dermatitis atopic
     Dosage: 300 MG, QOW
     Route: 058
  2. COENZYME Q10 [Concomitant]
     Active Substance: DIETARY SUPPLEMENT\UBIDECARENONE
  3. ALENDRONATE SODIUM [Concomitant]
     Active Substance: ALENDRONATE SODIUM
  4. CARVEDILOL [Concomitant]
     Active Substance: CARVEDILOL
  5. MAGNESIUM [Concomitant]
     Active Substance: MAGNESIUM
  6. EZETIMIBE [Concomitant]
     Active Substance: EZETIMIBE
  7. FLUTICASONE PROPIONATE [Concomitant]
     Active Substance: FLUTICASONE PROPIONATE
  8. CLARITIN [Concomitant]
     Active Substance: LORATADINE
  9. SINGULAIR [Concomitant]
     Active Substance: MONTELUKAST SODIUM
  10. VITAMIN D3 [Concomitant]
     Active Substance: CHOLECALCIFEROL
  11. ASPIRIN [Concomitant]
     Active Substance: ASPIRIN

REACTIONS (2)
  - Rash [Unknown]
  - Injection site pain [Unknown]
